FAERS Safety Report 6879912-5 (Version None)
Quarter: 2010Q3

REPORT INFORMATION
  Report Type: 
  Country: None (occurrence: None)
  Receive Date: 20100728
  Receipt Date: 20100722
  Transmission Date: 20110219
  Serious: Yes (Disabling, Other)
  Sender: FDA-Public Use
  Company Number: US-JNJCH-2003001249

PATIENT
  Age: 32 Year
  Sex: Female

DRUGS (13)
  1. BENADRYL INJECTABLE [Suspect]
     Indication: MASTOCYTOSIS
     Dosage: TEXT:UNKNOWN-FREQ:EVERY FOUR HOURS
     Route: 030
  2. BENADRYL ALLERGY DYE-FREE [Suspect]
     Indication: MASTOCYTOSIS
     Dosage: TEXT:UNKNOWN-FREQ:UNKNOWN
     Route: 048
  3. ATROPINE SULFATE [Concomitant]
     Route: 030
  4. EPINEPHRINE [Concomitant]
     Route: 030
  5. LORATADINE [Concomitant]
     Route: 065
  6. CROMOGLICATE SODIUM [Concomitant]
     Route: 065
  7. MAGNESIUM SULFATE [Concomitant]
     Route: 030
  8. FAMOTIDINE [Concomitant]
     Route: 065
  9. PREDNISONE [Concomitant]
     Route: 065
  10. TRIEST [Concomitant]
     Route: 065
  11. HYDROXYZINE EMBONATE [Concomitant]
     Route: 030
  12. CYANOCOBALAMIN [Concomitant]
     Route: 030
  13. FOLIC ACID [Concomitant]
     Route: 030

REACTIONS (5)
  - ANAPHYLACTIC REACTION [None]
  - BONE DISORDER [None]
  - LIVER DISORDER [None]
  - SYSTEMIC MASTOCYTOSIS [None]
  - THERAPEUTIC PROCEDURE [None]
